FAERS Safety Report 23300568 (Version 1)
Quarter: 2023Q4

REPORT INFORMATION
  Report Type: Spontaneous
  Country: BR (occurrence: BR)
  Receive Date: 20231215
  Receipt Date: 20231215
  Transmission Date: 20240110
  Serious: Yes (Other)
  Sender: FDA-Public Use
  Company Number: BR-SANDOZ-SDZ2023BR066341

PATIENT
  Sex: Female

DRUGS (1)
  1. LEVOFLOXACIN [Suspect]
     Active Substance: LEVOFLOXACIN
     Indication: Pneumonia
     Dosage: 1 TABLET PER DAY FOR 7 DAYS
     Route: 065

REACTIONS (9)
  - Chronic kidney disease [Unknown]
  - Pneumonia [Unknown]
  - Condition aggravated [Unknown]
  - Abdominal pain upper [Unknown]
  - Constipation [Unknown]
  - Product prescribing issue [Unknown]
  - Hypophagia [Unknown]
  - Off label use [Unknown]
  - Contraindicated product administered [Unknown]
